FAERS Safety Report 8515228-9 (Version None)
Quarter: 2012Q3

REPORT INFORMATION
  Report Type: 
  Country: None (occurrence: None)
  Receive Date: 20120717
  Receipt Date: 20120703
  Transmission Date: 20120928
  Serious: Yes (Other)
  Sender: FDA-Public Use
  Company Number: US-ARROW-2012-11620

PATIENT
  Age: 50 Year
  Sex: Male

DRUGS (1)
  1. FENTANYL-25 [Suspect]
     Indication: PRODUCT USED FOR UNKNOWN INDICATION
     Dosage: 25 MCG, 1 PATCH EVERY 72 HOURS
     Route: 062
     Dates: start: 20120629

REACTIONS (2)
  - CARDIAC DISORDER [None]
  - DYSPNOEA [None]
